FAERS Safety Report 5524167-7 (Version None)
Quarter: 2007Q4

REPORT INFORMATION
  Report Type: 
  Country: None (occurrence: None)
  Receive Date: 20071121
  Receipt Date: 20071116
  Transmission Date: 20080405
  Serious: Yes (Death, Life-Threatening)
  Sender: FDA-Public Use
  Company Number: DE-GENENTECH-221129

PATIENT
  Sex: Female

DRUGS (3)
  1. ACTIVASE [Suspect]
     Indication: CEREBRAL INFARCTION
     Dosage: 40 MG, SINGLE
     Route: 042
     Dates: start: 20051005, end: 20051005
  2. RHONAL [Concomitant]
     Indication: CEREBRAL INFARCTION
     Dosage: 300 MG, UNK
     Route: 048
     Dates: start: 20051006
  3. LIPITOR [Concomitant]
     Indication: HYPERCHOLESTEROLAEMIA
     Dosage: 40 MG, UNK
     Route: 048
     Dates: start: 20051006

REACTIONS (4)
  - CARDIAC ARREST [None]
  - COMA [None]
  - DEATH [None]
  - DYSPNOEA [None]
